FAERS Safety Report 14756889 (Version 1)
Quarter: 2018Q2

REPORT INFORMATION
  Report Type: Spontaneous
  Country: DE (occurrence: DE)
  Receive Date: 20180413
  Receipt Date: 20180413
  Transmission Date: 20180711
  Serious: Yes (Hospitalization)
  Sender: FDA-Public Use
  Company Number: DE-ALKEM LABORATORIES LIMITED-DE-ALKEM-2018-01910

PATIENT
  Age: 35 Year
  Sex: Male

DRUGS (3)
  1. QUENTIAX [Suspect]
     Active Substance: QUETIAPINE FUMARATE
     Indication: PRODUCT USED FOR UNKNOWN INDICATION
     Dosage: 25 MG, BID
     Route: 048
  2. QUETIAPINE FUMARATE. [Suspect]
     Active Substance: QUETIAPINE FUMARATE
     Indication: PRODUCT USED FOR UNKNOWN INDICATION
     Dosage: 600 MG, QD
     Route: 048
     Dates: start: 20171226, end: 20171226
  3. QUILONUM [Suspect]
     Active Substance: LITHIUM CARBONATE
     Indication: PRODUCT USED FOR UNKNOWN INDICATION
     Dosage: 450 MG, BID
     Route: 048

REACTIONS (4)
  - Dizziness [Unknown]
  - Anxiety [Unknown]
  - Intentional overdose [Unknown]
  - Suicide attempt [Unknown]

NARRATIVE: CASE EVENT DATE: 20171226
